FAERS Safety Report 6097581-1 (Version None)
Quarter: 2009Q1

REPORT INFORMATION
  Report Type: 
  Country: None (occurrence: None)
  Receive Date: 20090227
  Receipt Date: 20081205
  Transmission Date: 20090719
  Serious: No
  Sender: FDA-Public Use
  Company Number: A0759322A

PATIENT
  Sex: Male

DRUGS (1)
  1. IMITREX [Suspect]
     Route: 058
     Dates: start: 20081001, end: 20081001

REACTIONS (2)
  - ACCIDENTAL NEEDLE STICK [None]
  - PRODUCT QUALITY ISSUE [None]
